FAERS Safety Report 20392486 (Version 2)
Quarter: 2022Q1

REPORT INFORMATION
  Report Type: Spontaneous
  Country: FR (occurrence: FR)
  Receive Date: 20220128
  Receipt Date: 20220201
  Transmission Date: 20220424
  Serious: Yes (Other)
  Sender: FDA-Public Use
  Company Number: None

PATIENT
  Age: 17 Year
  Sex: Male
  Weight: 65 kg

DRUGS (3)
  1. LYRICA [Suspect]
     Active Substance: PREGABALIN
  2. SUBUTEX [Suspect]
     Active Substance: BUPRENORPHINE HYDROCHLORIDE
  3. RIVOTRIL [Suspect]
     Active Substance: CLONAZEPAM

REACTIONS (4)
  - Substance use disorder [Unknown]
  - Somnolence [Recovered/Resolved]
  - Mydriasis [Recovered/Resolved]
  - Bradypnoea [Recovered/Resolved]

NARRATIVE: CASE EVENT DATE: 20210226
